FAERS Safety Report 9725395 (Version 2)
Quarter: 2013Q4

REPORT INFORMATION
  Report Type: Report from Study
  Country: CO (occurrence: CO)
  Receive Date: 20131203
  Receipt Date: 20131206
  Transmission Date: 20140711
  Serious: Yes (Death, Hospitalization)
  Sender: FDA-Public Use
  Company Number: CO-SA-2013SA122536

PATIENT
  Age: 78 Year
  Sex: Female

DRUGS (3)
  1. LANTUS [Suspect]
     Indication: DIABETES MELLITUS
     Dosage: DOSE: 15 U AM AND 10 U PM
     Route: 058
     Dates: start: 2010, end: 20130903
  2. LOSARTAN [Concomitant]
     Indication: HYPERTENSION
     Route: 048
     Dates: end: 20130903
  3. METOPROLOL [Concomitant]
     Indication: HYPERTENSION
     Route: 048
     Dates: end: 20130903

REACTIONS (4)
  - Diabetic foot [Fatal]
  - Acute myocardial infarction [Fatal]
  - Hyperglycaemia [Unknown]
  - Off label use [Unknown]
